FAERS Safety Report 9409651 (Version 1)
Quarter: 2013Q3

REPORT INFORMATION
  Report Type: Report from Study
  Country: MX (occurrence: MX)
  Receive Date: 20130719
  Receipt Date: 20130719
  Transmission Date: 20140515
  Serious: Yes (Other)
  Sender: FDA-Public Use
  Company Number: PHHY2013MX074334

PATIENT
  Age: 53 Year
  Sex: Male

DRUGS (3)
  1. EXFORGE HCT [Suspect]
     Indication: HYPERTENSION
     Dosage: 2 DF(320 MG VALS/10 MG AMLO/25MG HYDR), DAILY
     Route: 048
     Dates: start: 201202, end: 201202
  2. SERENOA REPENS [Concomitant]
     Indication: PROSTATIC DISORDER
     Dosage: 2 UKN, DAILY
  3. FINASTERIDE [Concomitant]
     Indication: PROSTATIC DISORDER
     Dosage: 1 UKN, DAILY

REACTIONS (6)
  - Cholelithiasis [Not Recovered/Not Resolved]
  - Sleep apnoea syndrome [Not Recovered/Not Resolved]
  - Blood pressure increased [Not Recovered/Not Resolved]
  - Hypersensitivity [Recovered/Resolved]
  - Eyelid oedema [Recovered/Resolved]
  - Local swelling [Recovered/Resolved]
